FAERS Safety Report 6661553-6 (Version None)
Quarter: 2010Q1

REPORT INFORMATION
  Report Type: 
  Country: None (occurrence: None)
  Receive Date: 20100331
  Receipt Date: 20100319
  Transmission Date: 20100710
  Serious: Yes (Other)
  Sender: FDA-Public Use
  Company Number: JP-PFIZER INC-2010020145

PATIENT
  Age: 25 Year
  Sex: Female

DRUGS (4)
  1. ZOLOFT [Suspect]
     Indication: DEPRESSION
     Dosage: 25 MG/DAY
     Route: 048
     Dates: start: 20100130, end: 20100205
  2. LORAZEPAM [Concomitant]
     Indication: DEPRESSION
     Dosage: 0.5 MG/DAY
     Route: 048
     Dates: start: 20100130
  3. LANSOPRAZOLE [Concomitant]
     Dosage: UNK
  4. GANATON [Concomitant]
     Dosage: UNK

REACTIONS (1)
  - TOXIC EPIDERMAL NECROLYSIS [None]
